FAERS Safety Report 23899164 (Version 1)
Quarter: 2024Q2

REPORT INFORMATION
  Report Type: Spontaneous
  Country: US (occurrence: US)
  Receive Date: 20240526
  Receipt Date: 20240526
  Transmission Date: 20240716
  Serious: Yes (Hospitalization)
  Sender: FDA-Public Use
  Company Number: US-DRL-USA-LIT/USA/24/0007517

PATIENT
  Age: 56 Year
  Sex: Female

DRUGS (1)
  1. TIZANIDINE [Suspect]
     Active Substance: TIZANIDINE
     Indication: Multiple sclerosis
     Dosage: 30-DAY COURSE

REACTIONS (2)
  - Erythema multiforme [Recovered/Resolved]
  - Product use in unapproved indication [Unknown]
